FAERS Safety Report 12422801 (Version 1)
Quarter: 2016Q2

REPORT INFORMATION
  Report Type: Spontaneous
  Country: RU (occurrence: RU)
  Receive Date: 20160601
  Receipt Date: 20160601
  Transmission Date: 20160815
  Serious: Yes (Death, Other)
  Sender: FDA-Public Use
  Company Number: RU-ASTRAZENECA-2016SE57257

PATIENT
  Age: 59 Year
  Sex: Male

DRUGS (20)
  1. ATORVASTATIN [Concomitant]
     Active Substance: ATORVASTATIN
     Indication: ELECTROCARDIOGRAM ST SEGMENT ELEVATION
     Route: 048
     Dates: start: 20160224, end: 20160304
  2. LASYX [Concomitant]
     Dosage: 240.0MG UNKNOWN
     Route: 041
     Dates: start: 20160302, end: 20160304
  3. SIBASONE [Concomitant]
     Indication: ELECTROCARDIOGRAM ST SEGMENT ELEVATION
     Dosage: 2.0ML INTERMITTENT
     Route: 040
     Dates: start: 20160224, end: 20160303
  4. OMEZ [Concomitant]
     Active Substance: OMEPRAZOLE
     Indication: ELECTROCARDIOGRAM ST SEGMENT ELEVATION
     Route: 048
     Dates: start: 20160224, end: 20160304
  5. MORPHINE [Concomitant]
     Active Substance: MORPHINE
     Indication: ELECTROCARDIOGRAM ST SEGMENT ELEVATION
     Dosage: 110
     Route: 040
     Dates: start: 20160303, end: 20160303
  6. CERAXONE [Concomitant]
     Indication: CEREBROVASCULAR DISORDER
     Dosage: 1000.0MG UNKNOWN
     Route: 041
     Dates: start: 20160229, end: 20160304
  7. ENALAPRIL [Concomitant]
     Active Substance: ENALAPRIL
     Indication: ELECTROCARDIOGRAM ST SEGMENT ELEVATION
     Dosage: 20.0MG UNKNOWN
     Route: 048
     Dates: start: 20160227, end: 20160228
  8. LOSAP [Concomitant]
     Indication: ELECTROCARDIOGRAM ST SEGMENT ELEVATION
     Dosage: 125.0MG UNKNOWN
     Route: 048
     Dates: start: 20160229, end: 20160229
  9. ACTRAPID [Concomitant]
     Active Substance: INSULIN HUMAN
     Indication: GLUCOSE TOLERANCE IMPAIRED
     Dosage: AS NEEDED
     Route: 058
     Dates: start: 20160226, end: 20160304
  10. NUTRIPOMP [Concomitant]
     Indication: COMA
     Dosage: 1500.0ML UNKNOWN
     Route: 050
     Dates: start: 20160301, end: 20160304
  11. BRILINTA [Suspect]
     Active Substance: TICAGRELOR
     Dosage: 180 MG, DAILY LOADING DOSE
     Route: 048
     Dates: start: 20160224, end: 20160224
  12. BRILINTA [Suspect]
     Active Substance: TICAGRELOR
     Indication: ELECTROCARDIOGRAM ST SEGMENT ELEVATION
     Route: 048
     Dates: start: 20160225, end: 20160229
  13. DOPAMINE [Concomitant]
     Active Substance: DOPAMINE\DOPAMINE HYDROCHLORIDE
     Indication: ELECTROCARDIOGRAM ST SEGMENT ELEVATION
     Route: 041
     Dates: start: 20160301, end: 20160304
  14. HEPARIN [Concomitant]
     Active Substance: HEPARIN SODIUM
     Indication: ELECTROCARDIOGRAM ST SEGMENT ELEVATION
     Route: 041
     Dates: start: 20160224, end: 20160225
  15. CARDIASK [Concomitant]
     Active Substance: ASPIRIN
     Indication: ELECTROCARDIOGRAM ST SEGMENT ELEVATION
     Route: 048
     Dates: start: 20160301, end: 20160304
  16. SALINE SOLUTION [Concomitant]
     Active Substance: SODIUM CHLORIDE
     Indication: ELECTROCARDIOGRAM ST SEGMENT ELEVATION
     Dosage: 1000, DAILY
     Route: 041
     Dates: start: 20160226, end: 20160229
  17. FUROSEMIDE. [Concomitant]
     Active Substance: FUROSEMIDE
     Indication: ELECTROCARDIOGRAM ST SEGMENT ELEVATION
     Route: 048
     Dates: start: 20160229, end: 20160304
  18. CORDARONE [Concomitant]
     Active Substance: AMIODARONE HYDROCHLORIDE
     Indication: ELECTROCARDIOGRAM ST SEGMENT ELEVATION
     Route: 048
     Dates: start: 20160225, end: 20160304
  19. CEFTRIAXONE. [Concomitant]
     Active Substance: CEFTRIAXONE
     Indication: ELECTROCARDIOGRAM ST SEGMENT ELEVATION
     Dosage: 1.0G UNKNOWN
     Route: 040
     Dates: start: 20160225, end: 20160304
  20. LIDOCAINE. [Concomitant]
     Active Substance: LIDOCAINE
     Indication: VENTRICULAR FIBRILLATION
     Dosage: 80.0MG UNKNOWN
     Route: 040
     Dates: start: 20160224, end: 20160224

REACTIONS (9)
  - Haemodynamic instability [Fatal]
  - Extravasation blood [Unknown]
  - Brain oedema [Fatal]
  - Cardiogenic shock [Unknown]
  - Vascular stent thrombosis [Unknown]
  - Ischaemic stroke [Unknown]
  - Ventricular fibrillation [Unknown]
  - Arrhythmia [Fatal]
  - Multiple organ dysfunction syndrome [Fatal]

NARRATIVE: CASE EVENT DATE: 20160229
